FAERS Safety Report 5160345-7 (Version None)
Quarter: 2006Q4

REPORT INFORMATION
  Report Type: 
  Country: None (occurrence: None)
  Receive Date: 20061129
  Receipt Date: 20061027
  Transmission Date: 20070319
  Serious: Yes (Other)
  Sender: FDA-Public Use
  Company Number: US-SANOFI-SYNTHELABO-A03200606515

PATIENT
  Sex: Male

DRUGS (3)
  1. AMBIEN CR [Suspect]
     Indication: INSOMNIA
     Dosage: UNK
     Route: 048
     Dates: start: 20061026, end: 20061028
  2. WELLBUTRIN XL [Concomitant]
     Route: 048
     Dates: start: 20061006
  3. AMOXICILLIN + CLAVULINIC ACID [Concomitant]
     Route: 048
     Dates: start: 20061114

REACTIONS (4)
  - AMNESIA [None]
  - CONFUSIONAL STATE [None]
  - ROAD TRAFFIC ACCIDENT [None]
  - SOMNOLENCE [None]
